FAERS Safety Report 8305018-4 (Version None)
Quarter: 2012Q2

REPORT INFORMATION
  Report Type: 
  Country: None (occurrence: None)
  Receive Date: 20120423
  Receipt Date: 20120417
  Transmission Date: 20120825
  Serious: Yes (Hospitalization)
  Sender: FDA-Public Use
  Company Number: US-AMGEN-KDL437342

PATIENT
  Age: 53 Year
  Sex: Female

DRUGS (2)
  1. ENBREL [Suspect]
     Indication: RHEUMATOID ARTHRITIS
     Dosage: 50 MG, QWK
     Route: 058
     Dates: end: 20080101
  2. INFLUENZA VACCINE [Concomitant]
     Dosage: UNK UNK, UNK

REACTIONS (3)
  - VOMITING [None]
  - PAIN [None]
  - DIARRHOEA [None]
